FAERS Safety Report 23978433 (Version 1)
Quarter: 2024Q2

REPORT INFORMATION
  Report Type: Spontaneous
  Country: ZA (occurrence: None)
  Receive Date: 20240614
  Receipt Date: 20240614
  Transmission Date: 20240716
  Serious: Yes (Hospitalization)
  Sender: FDA-Public Use
  Company Number: 2024A134791

PATIENT
  Age: 81 Year
  Sex: Male

DRUGS (9)
  1. DAPAGLIFLOZIN PROPANEDIOL [Suspect]
     Active Substance: DAPAGLIFLOZIN PROPANEDIOL
     Route: 048
  2. DIAGLUCIDE MR 30 MG [Concomitant]
  3. STILPANE [Concomitant]
  4. CARDUGEN 4 MG [Concomitant]
  5. CALCIFEROL 50000 IU [Concomitant]
  6. LIPOGEN 80 MG [Concomitant]
  7. ECOTRIN 81 MG [Concomitant]
  8. EZETIMIBE TEVA 10 MG [Concomitant]
  9. EMCOR 2.5 MG [Concomitant]

REACTIONS (1)
  - Myocardial infarction [Unknown]
